FAERS Safety Report 6261866-6 (Version None)
Quarter: 2009Q3

REPORT INFORMATION
  Report Type: 
  Country: None (occurrence: None)
  Receive Date: 20090709
  Receipt Date: 20090701
  Transmission Date: 20100115
  Serious: Yes (Other)
  Sender: FDA-Public Use
  Company Number: A0795011A

PATIENT
  Age: 73 Year
  Sex: Female

DRUGS (14)
  1. ADVAIR HFA [Suspect]
     Indication: ASTHMA
     Dosage: 1PUFF TWICE PER DAY
     Route: 055
     Dates: start: 20080101
  2. RANITIDINE [Suspect]
     Dosage: 120MG PER DAY
     Route: 048
     Dates: start: 20080101
  3. ALBUTEROL [Concomitant]
  4. LEVOTHYROXINE SODIUM [Concomitant]
  5. COUMADIN [Concomitant]
  6. AMIODARONE HCL [Concomitant]
  7. DIOVAN [Concomitant]
  8. TOPROL-XL [Concomitant]
  9. SINGULAIR [Concomitant]
  10. ALLEGRA [Concomitant]
  11. LEXAPRO [Concomitant]
  12. CALCIUM [Concomitant]
  13. MULTI-VITAMIN [Concomitant]
  14. XANAX [Concomitant]

REACTIONS (6)
  - CATARACT [None]
  - DRUG INEFFECTIVE [None]
  - GLOSSODYNIA [None]
  - HEADACHE [None]
  - OROPHARYNGEAL PAIN [None]
  - SINUS OPERATION [None]
